FAERS Safety Report 7497534-2 (Version None)
Quarter: 2011Q2

REPORT INFORMATION
  Report Type: 
  Country: None (occurrence: None)
  Receive Date: 20110523
  Receipt Date: 20110510
  Transmission Date: 20111010
  Serious: Yes (Other)
  Sender: FDA-Public Use
  Company Number: PHHY2011IN40466

PATIENT
  Age: 68 Year
  Sex: Female

DRUGS (1)
  1. FEMARA [Suspect]
     Indication: BREAST CANCER
     Dosage: 2.5 MG, QD
     Dates: start: 20110501, end: 20110505

REACTIONS (4)
  - ENCEPHALOPATHY [None]
  - ARTHRALGIA [None]
  - PAIN [None]
  - MYALGIA [None]
